FAERS Safety Report 24435186 (Version 1)
Quarter: 2024Q4

REPORT INFORMATION
  Report Type: Spontaneous
  Country: US (occurrence: US)
  Receive Date: 20241015
  Receipt Date: 20241015
  Transmission Date: 20250114
  Serious: Yes (Hospitalization)
  Sender: CHEPLAPHARM
  Company Number: None

PATIENT

DRUGS (4)
  1. OLANZAPINE [Suspect]
     Active Substance: OLANZAPINE
     Indication: Antipsychotic therapy
     Dosage: 5 MG IN THE MORNING AND 10 MG IN THE EVENING?DAILY DOSE: 10 MILLIGRAM
  2. OLANZAPINE [Suspect]
     Active Substance: OLANZAPINE
     Indication: Antipsychotic therapy
     Dosage: 5 MG IN THE MORNING AND 10 MG IN THE EVENING?DAILY DOSE: 5 MILLIGRAM
  3. VALPROIC ACID [Suspect]
     Active Substance: VALPROIC ACID
     Indication: Antipsychotic therapy
     Dosage: 500 MG IN THE MORNING AND 700 MG IN THE EVENING?DAILY DOSE: 500 MILLIGRAM
  4. VALPROIC ACID [Suspect]
     Active Substance: VALPROIC ACID
     Indication: Antipsychotic therapy
     Dosage: 500 MG IN THE MORNING AND 700 MG IN THE EVENING?DAILY DOSE: 700 MILLIGRAM

REACTIONS (4)
  - Periorbital oedema [Recovered/Resolved]
  - Face oedema [Unknown]
  - Hypernatraemia [Unknown]
  - Leukocytosis [Unknown]
